FAERS Safety Report 10760865 (Version 1)
Quarter: 2015Q1

REPORT INFORMATION
  Report Type: Spontaneous
  Country: US (occurrence: None)
  Receive Date: 20150202
  Receipt Date: 20150202
  Transmission Date: 20150721
  Serious: Yes (Other)
  Sender: FDA-Public Use
  Company Number: US-MDCO-15-00025

PATIENT
  Age: 38 Year
  Sex: Female

DRUGS (2)
  1. HEPARIN [Suspect]
     Active Substance: HEPARIN SODIUM
     Indication: VENTRICULAR ASSIST DEVICE INSERTION
     Dosage: NOT REPORTED, NOT REPORTED?
  2. ARGATROBAN. [Suspect]
     Active Substance: ARGATROBAN
     Indication: VENTRICULAR ASSIST DEVICE INSERTION
     Dosage: NOT REPORTED, NOT REPORTED?

REACTIONS (2)
  - Pulmonary artery thrombosis [None]
  - Aortic thrombosis [None]
